FAERS Safety Report 5840892-2 (Version None)
Quarter: 2008Q3

REPORT INFORMATION
  Report Type: 
  Country: None (occurrence: None)
  Receive Date: 20080811
  Receipt Date: 20080730
  Transmission Date: 20090109
  Serious: Yes (Other)
  Sender: FDA-Public Use
  Company Number: DE-PFIZER INC-2008063944

PATIENT
  Age: 50 Year
  Sex: Female
  Weight: 60 kg

DRUGS (10)
  1. EPIRUBICIN HYDROCHLORIDE [Suspect]
     Dosage: DAILY DOSE:150MG/M2
     Route: 042
  2. NEULASTA [Suspect]
     Indication: CHEMOTHERAPY
     Dosage: DAILY DOSE:6MG
     Route: 058
     Dates: start: 20080214, end: 20080419
  3. NEUPOGEN [Suspect]
     Indication: CHEMOTHERAPY
     Route: 058
  4. PACLITAXEL [Concomitant]
     Dosage: DAILY DOSE:180MG/M2
     Route: 042
  5. CORTISONE [Concomitant]
  6. DEXAMETHASONE [Concomitant]
     Dosage: DAILY DOSE:8MG
     Route: 042
  7. ONDANSETRON [Concomitant]
     Dosage: DAILY DOSE:1MG
     Route: 042
  8. CLEMASTINE FUMARATE [Concomitant]
     Dosage: DAILY DOSE:2MG
     Route: 042
  9. RANITIDINE HYDROCHLORIDE [Concomitant]
     Dosage: DAILY DOSE:50MG
     Route: 042
  10. PYRIDOXINE HYDROCHLORIDE [Concomitant]
     Dosage: DAILY DOSE:100MG
     Route: 048

REACTIONS (18)
  - ABDOMINAL PAIN UPPER [None]
  - ASTHENIA [None]
  - BONE PAIN [None]
  - DYSPNOEA [None]
  - FEELING ABNORMAL [None]
  - FEELING HOT [None]
  - HEADACHE [None]
  - INSOMNIA [None]
  - LYMPH NODE PAIN [None]
  - LYMPHADENOPATHY [None]
  - METABOLIC DISORDER [None]
  - NECK PAIN [None]
  - PALPITATIONS [None]
  - PLATELET COUNT DECREASED [None]
  - RESTLESS LEGS SYNDROME [None]
  - SWEAT GLAND DISORDER [None]
  - TACHYCARDIA [None]
  - WHITE BLOOD CELL COUNT INCREASED [None]
